FAERS Safety Report 14144728 (Version 2)
Quarter: 2017Q4

REPORT INFORMATION
  Report Type: Spontaneous
  Country: US (occurrence: US)
  Receive Date: 20171031
  Receipt Date: 20171114
  Transmission Date: 20180321
  Serious: No
  Sender: FDA-Public Use
  Company Number: US-ASTRAZENECA-2017SF10214

PATIENT
  Sex: Male
  Weight: 115.7 kg

DRUGS (2)
  1. BYDUREON [Suspect]
     Active Substance: EXENATIDE
     Indication: TYPE 2 DIABETES MELLITUS
     Route: 065
     Dates: start: 201606
  2. BYDUREON [Suspect]
     Active Substance: EXENATIDE
     Indication: BLOOD GLUCOSE ABNORMAL
     Route: 065
     Dates: start: 201606

REACTIONS (3)
  - Injection site pain [Unknown]
  - Needle issue [Unknown]
  - Injection site haemorrhage [Unknown]
